FAERS Safety Report 8147591 (Version 2)
Quarter: 2019Q2

REPORT INFORMATION
  Report Type: Spontaneous
  Country: US (occurrence: US)
  Receive Date: 20110922
  Receipt Date: 20190527
  Transmission Date: 20190711
  Serious: Yes (Other)
  Sender: FDA-Public Use
  Company Number: PHHY2011US83195

PATIENT
  Age: 62 Year
  Sex: Male

DRUGS (1)
  1. ZOMETA [Suspect]
     Active Substance: ZOLEDRONIC ACID
     Indication: METASTASES TO SPINE
     Dosage: UNK, QMO
     Route: 042

REACTIONS (7)
  - Bone marrow oedema [Unknown]
  - Soft tissue haemorrhage [Unknown]
  - Bone disorder [Unknown]
  - Bone callus excessive [Unknown]
  - Fall [Unknown]
  - Femur fracture [Unknown]
  - Pain in extremity [Unknown]
